FAERS Safety Report 8192334-2 (Version None)
Quarter: 2012Q1

REPORT INFORMATION
  Report Type: 
  Country: None (occurrence: None)
  Receive Date: 20120307
  Receipt Date: 20120228
  Transmission Date: 20120608
  Serious: Yes (Other)
  Sender: FDA-Public Use
  Company Number: US-ASTRAZENECA-2011SE22921

PATIENT
  Age: 38 Year
  Sex: Female

DRUGS (1)
  1. SYMBICORT [Suspect]
     Indication: ASTHMA
     Dosage: 160/4.5, UNKNOWN
     Route: 055

REACTIONS (16)
  - RIB FRACTURE [None]
  - IMPAIRED WORK ABILITY [None]
  - HYPERTENSION [None]
  - MATERNAL EXPOSURE DURING PREGNANCY [None]
  - ACCIDENT [None]
  - LOWER LIMB FRACTURE [None]
  - MALAISE [None]
  - CARDIAC VALVE RUPTURE [None]
  - CARDIAC DISORDER [None]
  - TRAUMATIC LUNG INJURY [None]
  - ILL-DEFINED DISORDER [None]
  - SYNCOPE [None]
  - BURNS THIRD DEGREE [None]
  - BRADYCARDIA [None]
  - SINUS TACHYCARDIA [None]
  - DRUG DOSE OMISSION [None]
